FAERS Safety Report 7768717-9 (Version None)
Quarter: 2011Q3

REPORT INFORMATION
  Report Type: 
  Country: None (occurrence: None)
  Receive Date: 20110922
  Receipt Date: 20100923
  Transmission Date: 20111222
  Serious: No
  Sender: FDA-Public Use
  Company Number: US-ASTRAZENECA-2010SE44938

PATIENT
  Sex: Female
  Weight: 82.1 kg

DRUGS (3)
  1. SEROQUEL XR [Suspect]
     Route: 048
     Dates: start: 20100101
  2. SEROQUEL XR [Suspect]
     Indication: BIPOLAR DISORDER
     Route: 048
     Dates: start: 20100101, end: 20100101
  3. SEROQUEL XR [Suspect]
     Route: 048
     Dates: start: 20100101, end: 20100101

REACTIONS (2)
  - MALAISE [None]
  - TACHYPHRENIA [None]
